FAERS Safety Report 17794471 (Version 2)
Quarter: 2020Q2

REPORT INFORMATION
  Report Type: Not Available
  Country: US (occurrence: US)
  Receive Date: 20200515
  Receipt Date: 20200527
  Transmission Date: 20200714
  Serious: Yes (Hospitalization)
  Sender: FDA-Public Use
  Company Number: US-NEUROCRINE BIOSCIENCES INC.-2020NBI01503

PATIENT
  Age: 83 Year
  Sex: Male

DRUGS (1)
  1. INGREZZA [Suspect]
     Active Substance: VALBENAZINE
     Indication: TARDIVE DYSKINESIA
     Dosage: DURING THE FIRST HOSPITALIZATION, DOSE WAS MISSED FOR THREE OR FOUR DAYS (DATE UNKNOWN).
     Route: 048
     Dates: start: 20191223

REACTIONS (2)
  - Therapeutic product effect decreased [Unknown]
  - Myocardial infarction [Recovering/Resolving]

NARRATIVE: CASE EVENT DATE: 2020
